FAERS Safety Report 7380021-X (Version None)
Quarter: 2011Q1

REPORT INFORMATION
  Report Type: 
  Country: None (occurrence: None)
  Receive Date: 20110329
  Receipt Date: 20110321
  Transmission Date: 20110831
  Serious: Yes (Death, Other)
  Sender: FDA-Public Use
  Company Number: IT-JNJFOC-20110309889

PATIENT

DRUGS (23)
  1. DEXAMETHASONE [Suspect]
     Indication: LYMPHOCYTIC LEUKAEMIA
     Route: 048
  2. CYCLOPHOSPHAMIDE [Suspect]
     Route: 065
  3. CYCLOPHOSPHAMIDE [Suspect]
     Route: 065
  4. DOXORUBICIN HCL [Suspect]
     Indication: LYMPHOCYTIC LEUKAEMIA
     Route: 042
  5. VINCRISTINE [Suspect]
     Route: 042
  6. IFOSFAMIDE [Suspect]
     Indication: LYMPHOCYTIC LEUKAEMIA
     Route: 065
  7. PREDNISOLONE [Suspect]
     Route: 037
  8. METHOTREXATE [Suspect]
     Indication: LYMPHOCYTIC LEUKAEMIA
     Route: 037
  9. PREDNISOLONE [Suspect]
     Indication: LYMPHOCYTIC LEUKAEMIA
     Route: 037
  10. PREDNISOLONE [Suspect]
     Route: 037
  11. METHOTREXATE [Suspect]
     Route: 037
  12. PREDNISONE [Suspect]
     Indication: PREMEDICATION
     Route: 048
  13. PREDNISONE [Suspect]
     Indication: LYMPHOCYTIC LEUKAEMIA
     Route: 048
  14. TENIPOSIDE [Suspect]
     Indication: LYMPHOCYTIC LEUKAEMIA
  15. CYTARABINE [Suspect]
     Indication: LYMPHOCYTIC LEUKAEMIA
     Route: 037
  16. CYTARABINE [Suspect]
     Route: 037
  17. METHOTREXATE [Suspect]
     Route: 037
  18. DEXAMETHASONE [Suspect]
     Route: 048
  19. CYCLOPHOSPHAMIDE [Suspect]
     Indication: LYMPHOCYTIC LEUKAEMIA
     Route: 065
  20. VINCRISTINE [Suspect]
     Indication: LYMPHOCYTIC LEUKAEMIA
     Route: 042
  21. CYCLOPHOSPHAMIDE [Suspect]
     Indication: PREMEDICATION
     Route: 065
  22. CYTARABINE [Suspect]
     Route: 037
  23. LEUCOVORIN CALCIUM [Concomitant]
     Route: 042

REACTIONS (2)
  - TUMOUR LYSIS SYNDROME [None]
  - RENAL FAILURE [None]
